FAERS Safety Report 17312570 (Version 2)
Quarter: 2020Q1

REPORT INFORMATION
  Report Type: Spontaneous
  Country: AT (occurrence: AT)
  Receive Date: 20200123
  Receipt Date: 20200124
  Transmission Date: 20200409
  Serious: Yes (Death)
  Sender: FDA-Public Use
  Company Number: AT-BAXTER-2020BAX001553

PATIENT

DRUGS (7)
  1. DOXIL [Suspect]
     Active Substance: DOXORUBICIN HYDROCHLORIDE
     Indication: ATYPICAL TERATOID/RHABDOID TUMOUR OF CNS
     Dosage: 37.5 MG/M2/KG, DAY 1 AND 2 (37.5 MG/M2, 1 D)
     Route: 065
  2. HOLOXAN 2 G - TROCKENSUBSTANZ ZUR INJEKTIONSBEREITUNG [Suspect]
     Active Substance: IFOSFAMIDE
     Indication: ATYPICAL TERATOID/RHABDOID TUMOUR OF CNS
     Dosage: 2 G/M2/DA; DAYS 1-3 (2 GRAM PER SQUARE METER, 1 D)
     Route: 065
  3. ENDOXAN ^BAXTER^ 1G TROCKENSTECHAMPULLE [Suspect]
     Active Substance: CYCLOPHOSPHAMIDE
     Indication: ATYPICAL TERATOID/RHABDOID TUMOUR OF CNS
     Dosage: 1800 MG/M2/DAY, DAY1 (1800 MG/M2, 1 D)
     Route: 065
  4. TEMOZOLOMIDE. [Suspect]
     Active Substance: TEMOZOLOMIDE
     Indication: ATYPICAL TERATOID/RHABDOID TUMOUR OF CNS
     Route: 065
  5. CARBOPLATIN. [Suspect]
     Active Substance: CARBOPLATIN
     Indication: ATYPICAL TERATOID/RHABDOID TUMOUR OF CNS
     Dosage: 600 MG/M2/DAY; DAY 1 (600 MG/M2, 1 D)
     Route: 065
  6. VINCRISTINE [Suspect]
     Active Substance: VINCRISTINE
     Indication: ATYPICAL TERATOID/RHABDOID TUMOUR OF CNS
     Dosage: 1.5 MG/M2/DAY; DAYS 1, 8, AND 15 (1.5 MG/M2, 1 D)
     Route: 065
  7. ETOPOSIDE. [Suspect]
     Active Substance: ETOPOSIDE
     Indication: ATYPICAL TERATOID/RHABDOID TUMOUR OF CNS
     Dosage: 100 MG/M2/DAY, DAYS 1-3 (100 MG/M2, 1 D)
     Route: 065

REACTIONS (1)
  - Malignant neoplasm progression [Fatal]
